FAERS Safety Report 23919494 (Version 4)
Quarter: 2024Q4

REPORT INFORMATION
  Report Type: Spontaneous
  Country: JP (occurrence: JP)
  Receive Date: 20240530
  Receipt Date: 20241025
  Transmission Date: 20250115
  Serious: Yes (Death)
  Sender: EISAI
  Company Number: JP-Eisai-202402304_LEN-RCC_P_1

PATIENT
  Age: 84 Year
  Sex: Male

DRUGS (2)
  1. LENVIMA [Suspect]
     Active Substance: LENVATINIB
     Indication: Metastatic renal cell carcinoma
     Route: 048
     Dates: start: 20240328, end: 202404
  2. KEYTRUDA [Suspect]
     Active Substance: PEMBROLIZUMAB
     Indication: Metastatic renal cell carcinoma
     Route: 042
     Dates: start: 20240328, end: 20240520

REACTIONS (3)
  - Interstitial lung disease [Fatal]
  - Small intestinal haemorrhage [Fatal]
  - Malaise [Unknown]

NARRATIVE: CASE EVENT DATE: 20240101
